FAERS Safety Report 5055015-X (Version None)
Quarter: 2006Q3

REPORT INFORMATION
  Report Type: 
  Country: None (occurrence: None)
  Receive Date: 20060719
  Receipt Date: 20060710
  Transmission Date: 20061208
  Serious: Yes (Other)
  Sender: FDA-Public Use
  Company Number: JP-JNJFOC-20060700004

PATIENT
  Age: 40 Year
  Sex: Female

DRUGS (4)
  1. ITRACONAZOLE [Suspect]
     Route: 048
  2. ITRACONAZOLE [Suspect]
     Route: 048
  3. ITRACONAZOLE [Suspect]
     Route: 048
  4. ITRACONAZOLE [Suspect]
     Indication: NAIL TINEA
     Route: 048

REACTIONS (1)
  - LEUKOPENIA [None]
